FAERS Safety Report 8835914 (Version 1)
Quarter: 2012Q4

REPORT INFORMATION
  Report Type: 
  Country: US (occurrence: US)
  Receive Date: 20121011
  Receipt Date: 20121011
  Transmission Date: 20130627
  Serious: No
  Sender: FDA-Public Use
  Company Number: US-PFIZER INC-2012249098

PATIENT
  Age: 84 Year
  Sex: Female

DRUGS (5)
  1. MOTRIN IB [Suspect]
     Indication: ANALGESIC THERAPY
     Dosage: 1 caplet every night and morning
     Route: 048
     Dates: start: 1993
  2. LEVOTHYROXINE [Concomitant]
     Indication: THYROID DISORDER
     Dosage: 0.25 mg, 1x/day
     Route: 065
  3. LOSARTAN [Concomitant]
     Indication: BLOOD PRESSURE
     Dosage: 100 mg, 1x/day
     Route: 065
  4. CALCIUM WITH VITAMIN D [Concomitant]
     Indication: CALCIUM METABOLISM DISORDER
     Dosage: 600 mg, 1x/day
     Route: 065
  5. VITAMIN D3 [Concomitant]
     Indication: VITAMIN SUPPLEMENTATION
     Dosage: 1000 mg, 1x/day
     Route: 065

REACTIONS (2)
  - Expired drug administered [Unknown]
  - Therapeutic response increased [Unknown]
